FAERS Safety Report 4862883-0 (Version None)
Quarter: 2005Q4

REPORT INFORMATION
  Report Type: 
  Country: None (occurrence: None)
  Receive Date: 20051221
  Receipt Date: 20051209
  Transmission Date: 20060501
  Serious: Yes (Other)
  Sender: FDA-Public Use
  Company Number: FR-SANOFI-SYNTHELABO-A02200503236

PATIENT

DRUGS (1)
  1. MYTELASE [Suspect]
     Indication: MYASTHENIC SYNDROME
     Dosage: UNK
     Route: 064

REACTIONS (2)
  - DRUG EXPOSURE DURING PREGNANCY [None]
  - MYASTHENIA GRAVIS NEONATAL [None]
